FAERS Safety Report 24208195 (Version 3)
Quarter: 2024Q3

REPORT INFORMATION
  Report Type: Report from Study
  Country: US (occurrence: US)
  Receive Date: 20240814
  Receipt Date: 20240912
  Transmission Date: 20241017
  Serious: Yes (Hospitalization, Other)
  Sender: ABBVIE
  Company Number: US-ABBVIE-5875008

PATIENT
  Age: 71 Year
  Sex: Female
  Weight: 90.718 kg

DRUGS (3)
  1. RINVOQ [Suspect]
     Active Substance: UPADACITINIB
     Indication: Rheumatoid arthritis
     Dosage: FORM STRENGTH: 15 MG
     Route: 048
  2. RINVOQ [Suspect]
     Active Substance: UPADACITINIB
     Indication: Rheumatoid arthritis
     Dosage: FORM STRENGTH: 15 MG
     Route: 048
     Dates: start: 202011, end: 20240510
  3. TYLENOL [Concomitant]
     Active Substance: ACETAMINOPHEN
     Indication: Pain
     Route: 065

REACTIONS (22)
  - Renal failure [Recovered/Resolved]
  - Pruritus [Recovering/Resolving]
  - Gastrointestinal haemorrhage [Recovered/Resolved]
  - Sepsis [Recovered/Resolved]
  - Gastrointestinal perforation [Recovered/Resolved]
  - Urinary tract infection [Recovered/Resolved]
  - Cerebrovascular accident [Recovered/Resolved]
  - Fall [Recovered/Resolved]
  - Nephrectomy [Unknown]
  - Nosocomial infection [Recovered/Resolved]
  - Haemoglobin decreased [Not Recovered/Not Resolved]
  - Visual impairment [Not Recovered/Not Resolved]
  - White blood cell count increased [Recovered/Resolved]
  - Gait disturbance [Recovered/Resolved]
  - Nephrolithiasis [Recovered/Resolved]
  - Oesophageal haemorrhage [Recovered/Resolved]
  - Weight increased [Unknown]
  - Intensive care unit delirium [Recovered/Resolved]
  - Blood pressure increased [Recovered/Resolved]
  - Blister [Not Recovered/Not Resolved]
  - Asthenia [Recovering/Resolving]
  - Facial paralysis [Recovering/Resolving]

NARRATIVE: CASE EVENT DATE: 20240501
